FAERS Safety Report 22028539 (Version 1)
Quarter: 2023Q1

REPORT INFORMATION
  Report Type: Spontaneous
  Country: US (occurrence: None)
  Receive Date: 20230223
  Receipt Date: 20230223
  Transmission Date: 20230418
  Serious: No
  Sender: FDA-Public Use
  Company Number: US-ROCHE-3218420

PATIENT

DRUGS (2)
  1. NUTROPIN [Suspect]
     Active Substance: SOMATROPIN
     Indication: Product used for unknown indication
     Dosage: ONGOING: UNKNOWN
     Route: 065
  2. NUTROPIN [Suspect]
     Active Substance: SOMATROPIN

REACTIONS (3)
  - Product quality issue [Unknown]
  - Poor quality product administered [Unknown]
  - No adverse event [Unknown]
